APPROVED DRUG PRODUCT: METHADONE HYDROCHLORIDE
Active Ingredient: METHADONE HYDROCHLORIDE
Strength: 5MG
Dosage Form/Route: TABLET;ORAL
Application: A203502 | Product #001 | TE Code: AA
Applicant: AUROLIFE PHARMA LLC
Approved: Aug 31, 2015 | RLD: No | RS: No | Type: RX